FAERS Safety Report 20676949 (Version 2)
Quarter: 2022Q2

REPORT INFORMATION
  Report Type: Spontaneous
  Country: US (occurrence: US)
  Receive Date: 20220406
  Receipt Date: 20220414
  Transmission Date: 20220721
  Serious: Yes (Other)
  Sender: FDA-Public Use
  Company Number: US-CIPLA LTD.-2022US02025

PATIENT

DRUGS (8)
  1. OXALIPLATIN [Suspect]
     Active Substance: OXALIPLATIN
     Indication: Metastases to peritoneum
     Dosage: UNK, 5 CYCLES
     Dates: start: 2014, end: 2014
  2. OXALIPLATIN [Suspect]
     Active Substance: OXALIPLATIN
     Indication: Mucinous adenocarcinoma of appendix
     Dosage: UNK, 12 CYCLES
  3. FLUOROURACIL [Suspect]
     Active Substance: FLUOROURACIL
     Indication: Metastases to peritoneum
     Dosage: UNK, 5 CYCLES
     Dates: start: 2014, end: 2014
  4. FLUOROURACIL [Suspect]
     Active Substance: FLUOROURACIL
     Indication: Mucinous adenocarcinoma of appendix
  5. LEUCOVORIN [Suspect]
     Active Substance: LEUCOVORIN
     Indication: Metastases to peritoneum
     Dosage: UNK, 5 CYCLES
     Dates: start: 2014, end: 2014
  6. LEUCOVORIN [Suspect]
     Active Substance: LEUCOVORIN
     Indication: Mucinous adenocarcinoma of appendix
  7. CAPECITABINE [Suspect]
     Active Substance: CAPECITABINE
     Indication: Metastases to peritoneum
     Dosage: UNK, 2 CYCLES
     Dates: start: 2014, end: 2014
  8. CAPECITABINE [Suspect]
     Active Substance: CAPECITABINE
     Indication: Mucinous adenocarcinoma of appendix

REACTIONS (2)
  - Atrial fibrillation [Unknown]
  - Neuropathy peripheral [Unknown]

NARRATIVE: CASE EVENT DATE: 20140101
